FAERS Safety Report 9188377 (Version 1)
Quarter: 2012Q4

REPORT INFORMATION
  Report Type: 
  Country: US (occurrence: US)
  Receive Date: 20121205
  Receipt Date: 20121205
  Transmission Date: 20130627
  Serious: No
  Sender: FDA-Public Use
  Company Number: US-009507513-1212USA000691

PATIENT
  Sex: Female

DRUGS (6)
  1. PEGINTRON [Suspect]
     Dosage: 80 MCG\0.5 ml
     Route: 058
  2. RIBAVIRIN [Suspect]
     Dosage: 200 mg
  3. TYLENOL [Concomitant]
     Dosage: 500 mg
  4. SLOW FE [Concomitant]
     Dosage: 142 mg
  5. LEVOTHYROXINE SODIUM [Concomitant]
     Dosage: 75 mg
  6. LORAZEPAM [Concomitant]
     Dosage: 0.5 mg

REACTIONS (4)
  - Throat tightness [Unknown]
  - Full blood count decreased [Unknown]
  - Ear pain [Unknown]
  - Oropharyngeal pain [Unknown]
